FAERS Safety Report 16820226 (Version 1)
Quarter: 2019Q3

REPORT INFORMATION
  Report Type: Spontaneous
  Country: US (occurrence: US)
  Receive Date: 20190918
  Receipt Date: 20190918
  Transmission Date: 20191005
  Serious: Yes (Other)
  Sender: FDA-Public Use
  Company Number: US-JNJFOC-20190909532

PATIENT
  Sex: Male

DRUGS (1)
  1. CHILDRENS TYLENOL [Suspect]
     Active Substance: ACETAMINOPHEN
     Indication: ANALGESIC THERAPY
     Dosage: 7 DOSES OF CHILDREN^S TYLENOL TO MAKE ADULT STRENGTH INTO A CUP ONE TIME
     Route: 048
     Dates: start: 20190903, end: 20190903

REACTIONS (3)
  - Off label use [Unknown]
  - Post procedural haemorrhage [Recovered/Resolved]
  - Product administered to patient of inappropriate age [Unknown]

NARRATIVE: CASE EVENT DATE: 20190903
